FAERS Safety Report 10111155 (Version 1)
Quarter: 2014Q2

REPORT INFORMATION
  Report Type: Spontaneous
  Country: US (occurrence: None)
  Receive Date: 20140421
  Receipt Date: 20140421
  Transmission Date: 20141212
  Serious: No
  Sender: FDA-Public Use
  Company Number: AEGR000236

PATIENT
  Age: 35 Year
  Sex: Male
  Weight: 141.9 kg

DRUGS (12)
  1. JUXTAPID [Suspect]
     Indication: TYPE IIA HYPERLIPIDAEMIA
     Route: 048
     Dates: start: 201303
  2. WARFARIN (WARFARIN) [Concomitant]
  3. TRAZODONE (TRAZODONE) [Concomitant]
  4. PROZAC (FLUOXETINE HYDROCHLORIDE) [Concomitant]
  5. CRESTOR (ROSUVASTATIN CALCIUM) [Concomitant]
  6. WELCHOL (COLESEVELAM HYDROCHLORIDE) (625 MILLIGRAM, TABLET) (COLESEVELAM HYDROCHLORIDE) [Concomitant]
  7. ISOSORBIDE MONONITRATE (ISOSRBIDE MONONITRATE) [Concomitant]
  8. HYDRALAZINE (HYDRALAZINE HYDROCHLORIDE) [Concomitant]
  9. PERCOCET (OXYCODONE HYDROCHLORIDE) [Concomitant]
  10. ATIVAN (LORAZEPAM) [Concomitant]
  11. PRILOSEC (OMEPRAZOLE) [Concomitant]
  12. COREG (CARVEDILOL) [Concomitant]

REACTIONS (1)
  - Malaise [None]
